FAERS Safety Report 10164492 (Version 1)
Quarter: 2014Q2

REPORT INFORMATION
  Report Type: Spontaneous
  Country: US (occurrence: US)
  Receive Date: 20140510
  Receipt Date: 20140510
  Transmission Date: 20141212
  Serious: No
  Sender: FDA-Public Use
  Company Number: US-BRISTOL-MYERS SQUIBB COMPANY-19536358

PATIENT
  Age: 69 Year
  Sex: Male
  Weight: 99.77 kg

DRUGS (6)
  1. BYDUREON  2MG SUSPENSION [Suspect]
     Indication: TYPE 2 DIABETES MELLITUS
     Route: 058
     Dates: start: 20130915
  2. METFORMIN HCL [Suspect]
  3. GLIPIZIDE [Suspect]
  4. ACTOS [Suspect]
  5. ASPIRIN [Concomitant]
  6. VITAMIN D [Concomitant]

REACTIONS (1)
  - Blood glucose increased [Unknown]
